FAERS Safety Report 17933777 (Version 1)
Quarter: 2020Q2

REPORT INFORMATION
  Report Type: Other
  Country: US (occurrence: US)
  Receive Date: 20200623
  Receipt Date: 20200623
  Transmission Date: 20200714
  Serious: Yes (Other)
  Sender: FDA-Public Use
  Company Number: US-US-PROVELL PHARMACEUTICALS LLC-9168314

PATIENT
  Age: 41 Year
  Sex: Female

DRUGS (1)
  1. LEVOTHYROXINE. [Suspect]
     Active Substance: LEVOTHYROXINE
     Indication: OFF LABEL USE
     Dosage: INFUSION
     Route: 051

REACTIONS (4)
  - Off label use [Unknown]
  - Cardiac disorder [Recovered/Resolved]
  - Hypertension [Recovered/Resolved]
  - Respiratory disorder [Recovered/Resolved]
